FAERS Safety Report 19859541 (Version 1)
Quarter: 2021Q3

REPORT INFORMATION
  Report Type: Spontaneous
  Country: US (occurrence: US)
  Receive Date: 20210920
  Receipt Date: 20210920
  Transmission Date: 20211014
  Serious: Yes (Death)
  Sender: FDA-Public Use
  Company Number: None

PATIENT
  Age: 80 Year
  Sex: Female
  Weight: 61.8 kg

DRUGS (1)
  1. APIXABAN [Suspect]
     Active Substance: APIXABAN
     Indication: ATRIAL FIBRILLATION
     Route: 048
     Dates: start: 20210704, end: 20210803

REACTIONS (5)
  - Fall [None]
  - Brain herniation [None]
  - Subdural haematoma [None]
  - Cardiopulmonary failure [None]
  - Mental status changes [None]

NARRATIVE: CASE EVENT DATE: 20210803
